FAERS Safety Report 7382134-5 (Version None)
Quarter: 2011Q1

REPORT INFORMATION
  Report Type: 
  Country: None (occurrence: None)
  Receive Date: 20110329
  Receipt Date: 20101227
  Transmission Date: 20110831
  Serious: Yes (Death, Hospitalization, Disabling)
  Sender: FDA-Public Use
  Company Number: JP-BAYER-201012371BYL

PATIENT
  Sex: Female
  Weight: 51 kg

DRUGS (10)
  1. SORAFENIB (RAF KINASE INHIBITOR) [Suspect]
     Dosage: 600 MG, UNK
     Route: 048
     Dates: start: 20090909, end: 20091103
  2. LASIX [Concomitant]
     Indication: ASCITES
     Dosage: DAILY DOSE 20 MG
     Route: 042
     Dates: start: 20100403, end: 20100425
  3. LACBON [Concomitant]
     Indication: DIARRHOEA
     Dosage: DAILY DOSE 3 G
     Route: 048
     Dates: start: 20090708
  4. SORAFENIB (RAF KINASE INHIBITOR) [Suspect]
     Dosage: 400-600 MG, QOD
     Route: 048
     Dates: start: 20091104, end: 20091217
  5. SORAFENIB (RAF KINASE INHIBITOR) [Suspect]
     Indication: HEPATIC NEOPLASM MALIGNANT
     Dosage: 400 MG, UNK
     Route: 048
     Dates: start: 20090101
  6. SORAFENIB (RAF KINASE INHIBITOR) [Suspect]
     Dosage: 400 MG, UNK
     Route: 048
     Dates: start: 20100105, end: 20100426
  7. DIOVAN [Concomitant]
     Dosage: DAILY DOSE 40 MG
     Route: 048
  8. FARMORUBICIN [Concomitant]
     Dosage: DAILY DOSE 20 MG
     Route: 013
     Dates: start: 20091218, end: 20091218
  9. LASIX [Concomitant]
     Indication: OEDEMA
     Dosage: DAILY DOSE 20 MG
     Route: 048
     Dates: start: 20090708
  10. SORAFENIB (RAF KINASE INHIBITOR) [Suspect]
     Dosage: 200 MG, BID
     Route: 048
     Dates: start: 20090708, end: 20090909

REACTIONS (10)
  - DIARRHOEA [None]
  - HEPATIC NEOPLASM MALIGNANT [None]
  - ASCITES [None]
  - PALMAR-PLANTAR ERYTHRODYSAESTHESIA SYNDROME [None]
  - HEPATIC FUNCTION ABNORMAL [None]
  - ALANINE AMINOTRANSFERASE INCREASED [None]
  - HYPOALBUMINAEMIA [None]
  - ALOPECIA [None]
  - OEDEMA [None]
  - HYPERBILIRUBINAEMIA [None]
